FAERS Safety Report 15408476 (Version 1)
Quarter: 2018Q3

REPORT INFORMATION
  Report Type: Spontaneous
  Country: US (occurrence: US)
  Receive Date: 20180920
  Receipt Date: 20180920
  Transmission Date: 20181010
  Serious: No
  Sender: FDA-Public Use
  Company Number: US-INCYTE CORPORATION-2018IN009379

PATIENT

DRUGS (1)
  1. JAKAFI [Suspect]
     Active Substance: RUXOLITINIB
     Dosage: 15 MG, BID?M/W/F/S, QD?T/TH/S
     Route: 048
     Dates: start: 20161115

REACTIONS (2)
  - Inappropriate schedule of drug administration [Unknown]
  - Weight increased [Unknown]

NARRATIVE: CASE EVENT DATE: 20161115
